FAERS Safety Report 9171092 (Version 1)
Quarter: 2013Q1

REPORT INFORMATION
  Report Type: Spontaneous
  Country: US (occurrence: US)
  Receive Date: 20130319
  Receipt Date: 20130319
  Transmission Date: 20140127
  Serious: Yes (Life-Threatening, Disabling, Congenital Anomaly)
  Sender: FDA-Public Use
  Company Number: US-ELI_LILLY_AND_COMPANY-US201303003356

PATIENT
  Sex: Female

DRUGS (1)
  1. PROZAC [Suspect]
     Route: 064

REACTIONS (3)
  - Lissencephaly [Unknown]
  - Neonatal anoxia [Unknown]
  - Foetal exposure during pregnancy [Unknown]
